FAERS Safety Report 14290235 (Version 2)
Quarter: 2017Q4

REPORT INFORMATION
  Report Type: Report from Study
  Country: MW (occurrence: MW)
  Receive Date: 20171215
  Receipt Date: 20171229
  Transmission Date: 20180321
  Serious: Yes (Death, Hospitalization, Other)
  Sender: FDA-Public Use
  Company Number: PHHY2017MW186299

PATIENT
  Sex: Female

DRUGS (1)
  1. GLIVEC [Suspect]
     Active Substance: IMATINIB MESYLATE
     Indication: GASTROINTESTINAL STROMAL TUMOUR
     Dosage: 400 MG, UNK
     Route: 065

REACTIONS (7)
  - Malignant neoplasm progression [Unknown]
  - Anaemia [Fatal]
  - Haematemesis [Unknown]
  - Rectal haemorrhage [Unknown]
  - Foaming at mouth [Unknown]
  - Gastrointestinal stromal tumour [Fatal]
  - Confusional state [Unknown]
